FAERS Safety Report 8500835-X (Version None)
Quarter: 2012Q2

REPORT INFORMATION
  Report Type: 
  Country: None (occurrence: None)
  Receive Date: 20120405
  Receipt Date: 20110207
  Transmission Date: 20120825
  Serious: Yes (Hospitalization)
  Sender: FDA-Public Use
  Company Number: PHHY2011US05447

PATIENT
  Age: 66 Year
  Sex: Male

DRUGS (6)
  1. GLYBURIDE [Concomitant]
  2. MUSCLE RELAXANTS (NO INGREDIENTS/SUBSTANCES) [Concomitant]
  3. ATENOLOL [Concomitant]
  4. STEROIDS NOS (NO INGREDIENTS/SUBSTANCE) [Concomitant]
  5. RECLAST [Suspect]
     Indication: OSTEOPOROSIS
     Dosage: 5 MG, YEARLY, INTRAVENOUS
     Route: 042
     Dates: start: 20101223
  6. SYNTHROID [Concomitant]

REACTIONS (7)
  - PAIN IN EXTREMITY [None]
  - ASTHENIA [None]
  - GAIT DISTURBANCE [None]
  - MYALGIA [None]
  - ARTHRALGIA [None]
  - MUSCULOSKELETAL CHEST PAIN [None]
  - MALAISE [None]
